FAERS Safety Report 5146737-0 (Version None)
Quarter: 2006Q4

REPORT INFORMATION
  Report Type: 
  Country: None (occurrence: None)
  Receive Date: 20061107
  Receipt Date: 20061107
  Transmission Date: 20070319
  Serious: Yes (Hospitalization)
  Sender: FDA-Public Use
  Company Number: None

PATIENT
  Age: 80 Year
  Sex: Male
  Weight: 57.3 kg

DRUGS (7)
  1. ASPIRIN [Suspect]
     Dosage: 81 MG QD BY MOUTH
     Route: 048
     Dates: start: 20060410, end: 20060818
  2. DIPYRIDAMOLE [Suspect]
     Dosage: 75 MG TID BY MOUTH PO
     Route: 048
     Dates: start: 20060410, end: 20060818
  3. LISINOPRIL [Concomitant]
  4. SIMVASTATIN [Concomitant]
  5. ACETAMINOPHEN [Concomitant]
  6. FERROUS SULFATE TAB [Concomitant]
  7. GOSERELIN ACETATE [Concomitant]

REACTIONS (3)
  - HAEMATEMESIS [None]
  - HAEMORRHAGE [None]
  - VOMITING [None]
